FAERS Safety Report 10471107 (Version 2)
Quarter: 2014Q3

REPORT INFORMATION
  Report Type: Report from Study
  Country: AR (occurrence: AR)
  Receive Date: 20140923
  Receipt Date: 20140923
  Transmission Date: 20150326
  Serious: Yes (Death, Life-Threatening, Hospitalization)
  Sender: FDA-Public Use
  Company Number: AR-BRISTOL-MYERS SQUIBB COMPANY-20580254

PATIENT
  Age: 69 Year
  Sex: Male

DRUGS (9)
  1. ACICLOVIR [Concomitant]
     Active Substance: ACYCLOVIR
  2. CARVEDILOL. [Concomitant]
     Active Substance: CARVEDILOL
  3. OMEPRAZOLE. [Concomitant]
     Active Substance: OMEPRAZOLE
  4. AAS [Concomitant]
     Active Substance: ASPIRIN
  5. NULOJIX [Suspect]
     Active Substance: BELATACEPT
     Dosage: INJECTION ?250MG, 4
     Route: 042
  6. ADALAT [Concomitant]
     Active Substance: NIFEDIPINE
  7. BACTRIM [Concomitant]
     Active Substance: SULFAMETHOXAZOLE\TRIMETHOPRIM
  8. FOLIC ACID. [Concomitant]
     Active Substance: FOLIC ACID
  9. TERAZOSIN [Concomitant]
     Active Substance: TERAZOSIN\TERAZOSIN HYDROCHLORIDE

REACTIONS (6)
  - Urinary tract infection [Unknown]
  - Chronic allograft nephropathy [Unknown]
  - Pyelonephritis [Unknown]
  - Pneumonia [Fatal]
  - Multi-organ failure [Fatal]
  - Septic shock [Fatal]

NARRATIVE: CASE EVENT DATE: 201403
